FAERS Safety Report 5399936-7 (Version None)
Quarter: 2007Q3

REPORT INFORMATION
  Report Type: 
  Country: None (occurrence: None)
  Receive Date: 20070726
  Receipt Date: 20070726
  Transmission Date: 20080115
  Serious: Yes (Other)
  Sender: FDA-Public Use
  Company Number: None

PATIENT
  Sex: Male
  Weight: 88.905 kg

DRUGS (1)
  1. SUBOXONE [Suspect]
     Indication: DRUG DEPENDENCE
     Dosage: ONE SL. DAILY
     Dates: start: 20070515, end: 20070717

REACTIONS (7)
  - ARTHRALGIA [None]
  - BACK PAIN [None]
  - DYSURIA [None]
  - JOINT SWELLING [None]
  - OEDEMA [None]
  - PAIN IN EXTREMITY [None]
  - URINARY TRACT INFECTION [None]
